FAERS Safety Report 22183719 (Version 6)
Quarter: 2025Q2

REPORT INFORMATION
  Report Type: Spontaneous
  Country: JP (occurrence: JP)
  Receive Date: 20230406
  Receipt Date: 20250612
  Transmission Date: 20250716
  Serious: Yes (Other)
  Sender: AMGEN
  Company Number: JP-Vifor (International) Inc.-VIT-2023-02343

PATIENT
  Age: 71 Year
  Sex: Female
  Weight: 46.1 kg

DRUGS (33)
  1. TAVNEOS [Suspect]
     Active Substance: AVACOPAN
     Indication: Microscopic polyangiitis
     Dosage: INDUCTION OF REMISSION
     Route: 048
     Dates: start: 20230309, end: 20230317
  2. TAVNEOS [Suspect]
     Active Substance: AVACOPAN
     Dosage: 20,MG,BID
     Route: 048
     Dates: start: 20230328, end: 20230330
  3. TAVNEOS [Suspect]
     Active Substance: AVACOPAN
     Dosage: 30,MG,BID
     Route: 048
     Dates: start: 20230331
  4. PREDNISOLONE [Concomitant]
     Active Substance: PREDNISOLONE
     Indication: Microscopic polyangiitis
     Dosage: 30,MG,QD
     Route: 048
     Dates: start: 20230309, end: 20230314
  5. PREDNISOLONE [Concomitant]
     Active Substance: PREDNISOLONE
     Dosage: 20,MG,QD
     Route: 040
     Dates: start: 20230315, end: 20230317
  6. PREDNISOLONE [Concomitant]
     Active Substance: PREDNISOLONE
     Dosage: 30,MG,QD
     Route: 040
     Dates: start: 20230318, end: 20230321
  7. PREDNISOLONE [Concomitant]
     Active Substance: PREDNISOLONE
     Dosage: 30,MG,QD
     Route: 040
     Dates: start: 20230325, end: 20230327
  8. PREDNISOLONE [Concomitant]
     Active Substance: PREDNISOLONE
     Dosage: 15,MG,QD
     Route: 048
     Dates: start: 20230328, end: 20230411
  9. PREDNISOLONE [Concomitant]
     Active Substance: PREDNISOLONE
     Dosage: 12.5,MG,QD
     Route: 048
     Dates: start: 20230412, end: 20230418
  10. PREDNISOLONE [Concomitant]
     Active Substance: PREDNISOLONE
     Route: 048
     Dates: start: 20230419, end: 20230425
  11. PREDNISOLONE [Concomitant]
     Active Substance: PREDNISOLONE
     Route: 048
     Dates: start: 20230426, end: 20230509
  12. PREDNISOLONE [Concomitant]
     Active Substance: PREDNISOLONE
     Route: 048
     Dates: start: 20230510, end: 20230516
  13. PREDNISOLONE [Concomitant]
     Active Substance: PREDNISOLONE
     Route: 048
     Dates: start: 20230517, end: 20230525
  14. PREDNISOLONE [Concomitant]
     Active Substance: PREDNISOLONE
     Route: 048
     Dates: start: 20230526, end: 20230815
  15. PREDNISOLONE [Concomitant]
     Active Substance: PREDNISOLONE
     Route: 048
     Dates: start: 20230816, end: 20231017
  16. PREDNISOLONE [Concomitant]
     Active Substance: PREDNISOLONE
     Route: 048
     Dates: start: 20231018, end: 20231226
  17. PREDNISOLONE [Concomitant]
     Active Substance: PREDNISOLONE
     Route: 048
     Dates: start: 20231227
  18. PREDNISOLONE [Concomitant]
     Active Substance: PREDNISOLONE
     Route: 048
     Dates: start: 20231018, end: 20231226
  19. RITUXIMAB [Concomitant]
     Active Substance: RITUXIMAB
     Indication: Microscopic polyangiitis
     Dosage: GENETICAL RECOMBINATION
     Route: 042
     Dates: start: 20230309
  20. RITUXIMAB [Concomitant]
     Active Substance: RITUXIMAB
     Route: 042
     Dates: start: 20230310, end: 20230310
  21. RITUXIMAB [Concomitant]
     Active Substance: RITUXIMAB
     Route: 042
     Dates: start: 20230317, end: 20230317
  22. RITUXIMAB [Concomitant]
     Active Substance: RITUXIMAB
     Route: 042
     Dates: start: 20230324, end: 20230324
  23. RITUXIMAB [Concomitant]
     Active Substance: RITUXIMAB
     Route: 042
     Dates: start: 20230331, end: 20230331
  24. RITUXIMAB [Concomitant]
     Active Substance: RITUXIMAB
     Route: 042
     Dates: start: 20230816, end: 20230816
  25. RITUXIMAB [Concomitant]
     Active Substance: RITUXIMAB
     Route: 042
     Dates: start: 20240306, end: 20240306
  26. RITUXIMAB [Concomitant]
     Active Substance: RITUXIMAB
     Route: 042
     Dates: start: 20240821, end: 20240821
  27. METHYLPREDNISOLONE [Concomitant]
     Active Substance: METHYLPREDNISOLONE
     Indication: Microscopic polyangiitis
     Dosage: 500,MG,QD
     Route: 040
     Dates: start: 20230322, end: 20230324
  28. SULFAMETHOXAZOLE\TRIMETHOPRIM [Concomitant]
     Active Substance: SULFAMETHOXAZOLE\TRIMETHOPRIM
     Indication: Antifungal prophylaxis
     Dosage: 1000,MG,QW
     Route: 048
     Dates: start: 20230404, end: 20230404
  29. SULFAMETHOXAZOLE\TRIMETHOPRIM [Concomitant]
     Active Substance: SULFAMETHOXAZOLE\TRIMETHOPRIM
     Dosage: 3000,MG,QW
     Route: 048
     Dates: start: 20230405
  30. RABEPRAZOLE SODIUM [Concomitant]
     Active Substance: RABEPRAZOLE SODIUM
     Indication: Product used for unknown indication
     Route: 048
     Dates: start: 20230309
  31. TENELIGLIPTIN [Concomitant]
     Active Substance: TENELIGLIPTIN
     Indication: Product used for unknown indication
     Route: 048
     Dates: start: 20230309
  32. ONEALFA [Concomitant]
     Active Substance: ALFACALCIDOL
     Indication: Prophylaxis
     Route: 048
     Dates: start: 20230314
  33. ALENDRONATE [Concomitant]
     Active Substance: ALENDRONATE SODIUM
     Indication: Prophylaxis
     Route: 048
     Dates: start: 20230315

REACTIONS (3)
  - Posterior reversible encephalopathy syndrome [Recovered/Resolved]
  - Subarachnoid haemorrhage [Recovering/Resolving]
  - Underdose [Unknown]

NARRATIVE: CASE EVENT DATE: 20230301
